FAERS Safety Report 19388915 (Version 1)
Quarter: 2021Q2

REPORT INFORMATION
  Report Type: Spontaneous
  Country: US (occurrence: US)
  Receive Date: 20210607
  Receipt Date: 20210607
  Transmission Date: 20210717
  Serious: Yes (Life-Threatening)
  Sender: FDA-Public Use
  Company Number: None

PATIENT
  Age: 77 Year
  Sex: Female
  Weight: 61.2 kg

DRUGS (4)
  1. ANAVIP [Suspect]
     Active Substance: PIT VIPER (CROTALINAE) IMMUNE GLOBULIN ANTIVENIN (EQUINE)
     Indication: SNAKE BITE
     Dosage: ?          OTHER FREQUENCY:ONCE;?
     Route: 041
     Dates: start: 20210604, end: 20210604
  2. MORPHINE 4MG IV [Concomitant]
     Dates: start: 20210604, end: 20210604
  3. ONDANSETRON 4MG IV [Concomitant]
     Active Substance: ONDANSETRON
     Dates: start: 20210604, end: 20210604
  4. BOOSTRIX 0.5ML IM [Concomitant]
     Dates: start: 20210604, end: 20210604

REACTIONS (2)
  - Urticaria [None]
  - Hypotension [None]

NARRATIVE: CASE EVENT DATE: 20210604
